FAERS Safety Report 14350938 (Version 2)
Quarter: 2018Q1

REPORT INFORMATION
  Report Type: Spontaneous
  Country: US (occurrence: US)
  Receive Date: 20180104
  Receipt Date: 20180205
  Transmission Date: 20180509
  Serious: Yes (Death, Hospitalization, Other)
  Sender: FDA-Public Use
  Company Number: US-REGENERON PHARMACEUTICALS, INC.-2017-30358

PATIENT

DRUGS (3)
  1. EYLEA [Suspect]
     Active Substance: AFLIBERCEPT
     Indication: DIABETIC RETINAL OEDEMA
     Dosage: 2 MG/0.05ML, MONTHLY
     Route: 031
     Dates: start: 20160915, end: 20161222
  2. INSULIN [Concomitant]
     Active Substance: INSULIN NOS
     Indication: PRODUCT USED FOR UNKNOWN INDICATION
  3. PLAVIX [Concomitant]
     Active Substance: CLOPIDOGREL BISULFATE

REACTIONS (5)
  - Pneumonia [Fatal]
  - Sepsis [Fatal]
  - Lung neoplasm malignant [Fatal]
  - Coronary arterial stent insertion [Unknown]
  - Staphylococcal infection [Fatal]

NARRATIVE: CASE EVENT DATE: 2017
